FAERS Safety Report 6464186-X (Version None)
Quarter: 2009Q4

REPORT INFORMATION
  Report Type: 
  Country: None (occurrence: None)
  Receive Date: 20091201
  Receipt Date: 20091105
  Transmission Date: 20100525
  Serious: Yes (Other)
  Sender: FDA-Public Use
  Company Number: PHHY2009GR48613

PATIENT
  Age: 62 Year
  Sex: Female

DRUGS (2)
  1. EXTAVIA [Suspect]
     Dosage: 0.50 ML
     Dates: start: 20091023
  2. EXTAVIA [Suspect]
     Dosage: 0.75 ML

REACTIONS (1)
  - DIPLEGIA [None]
